FAERS Safety Report 24365739 (Version 1)
Quarter: 2024Q3

REPORT INFORMATION
  Report Type: Spontaneous
  Country: DE (occurrence: DE)
  Receive Date: 20240926
  Receipt Date: 20240926
  Transmission Date: 20241017
  Serious: Yes (Life-Threatening, Hospitalization, Other)
  Sender: NOVARTIS
  Company Number: DE-DCGMA-24203916

PATIENT
  Age: 38 Year
  Sex: Male

DRUGS (1)
  1. KESIMPTA [Suspect]
     Active Substance: OFATUMUMAB
     Indication: Relapsing-remitting multiple sclerosis
     Dosage: DAILY DOSE: 20 MG EVERY 1 DAY
     Route: 058
     Dates: start: 202210

REACTIONS (1)
  - Naevoid melanoma [Recovered/Resolved with Sequelae]

NARRATIVE: CASE EVENT DATE: 20240101
